FAERS Safety Report 19798592 (Version 1)
Quarter: 2021Q3

REPORT INFORMATION
  Report Type: Spontaneous
  Country: US (occurrence: US)
  Receive Date: 20210907
  Receipt Date: 20210907
  Transmission Date: 20211014
  Serious: Yes (Hospitalization)
  Sender: FDA-Public Use
  Company Number: US-ORPHANEU-2020004900

PATIENT

DRUGS (4)
  1. TEMSIROLIMUS. [Suspect]
     Active Substance: TEMSIROLIMUS
     Indication: EMBRYONAL RHABDOMYOSARCOMA
     Dosage: UNK
     Dates: start: 20200918
  2. UNSPECIFIED DACTINOMYCIN [Suspect]
     Active Substance: DACTINOMYCIN
     Indication: EMBRYONAL RHABDOMYOSARCOMA
     Dosage: 0.05 MILLIGRAM/KILOGRAM, CYCLICAL
  3. VINCRISTINE SULFATE. [Suspect]
     Active Substance: VINCRISTINE SULFATE
     Indication: EMBRYONAL RHABDOMYOSARCOMA
     Dosage: 1.5 MILLIGRAM/SQ. METER, CYCLIC (OVER 1 MINUTE OR INFUSION VIA MINIBAG ON DAYS 1, 8, AND 15)
     Dates: start: 20200918, end: 20200918
  4. CYCLOPHOSPHAMIDE. [Suspect]
     Active Substance: CYCLOPHOSPHAMIDE
     Indication: EMBRYONAL RHABDOMYOSARCOMA
     Dosage: 1200 MILLIGRAM/SQ. METER, CYCLIC (OVER 60 MINUTES ON DAY 1 OF CYCLES 1 AND 3)

REACTIONS (2)
  - Febrile neutropenia [Recovered/Resolved]
  - Anaemia [Recovered/Resolved]

NARRATIVE: CASE EVENT DATE: 20200918
